FAERS Safety Report 25623025 (Version 1)
Quarter: 2025Q3

REPORT INFORMATION
  Report Type: Spontaneous
  Country: US (occurrence: US)
  Receive Date: 20250730
  Receipt Date: 20250730
  Transmission Date: 20251020
  Serious: No
  Sender: GALPHARM INTERNATIONAL
  Company Number: US-PERRIGO-25US005053

PATIENT
  Age: 81 Year
  Weight: 56.689 kg

DRUGS (1)
  1. LORATADINE [Suspect]
     Active Substance: LORATADINE
     Indication: Incorrect dose administered
     Route: 048
     Dates: start: 20250417, end: 20250417

REACTIONS (4)
  - Feeling abnormal [Unknown]
  - Feeling jittery [Unknown]
  - Headache [Unknown]
  - Incorrect dose administered [Unknown]

NARRATIVE: CASE EVENT DATE: 20250417
